FAERS Safety Report 8320061-7 (Version None)
Quarter: 2012Q2

REPORT INFORMATION
  Report Type: 
  Country: None (occurrence: None)
  Receive Date: 20120427
  Receipt Date: 20120413
  Transmission Date: 20120825
  Serious: Yes (Hospitalization)
  Sender: FDA-Public Use
  Company Number: CHPA2012US009340

PATIENT
  Sex: Female

DRUGS (2)
  1. EXCEDRIN EXTRA STRENGTH TABLETS [Suspect]
     Indication: MIGRAINE
     Dosage: 2 DF, QD
     Route: 048
  2. EXCEDRIN EXTRA STRENGTH TABLETS [Suspect]
     Dosage: 0.5 DF, QD
     Route: 048

REACTIONS (8)
  - UNDERDOSE [None]
  - INCORRECT DRUG ADMINISTRATION DURATION [None]
  - MALAISE [None]
  - RETCHING [None]
  - MYOCARDIAL INFARCTION [None]
  - DYSPNOEA [None]
  - CHEST PAIN [None]
  - WRONG TECHNIQUE IN DRUG USAGE PROCESS [None]
